FAERS Safety Report 18476137 (Version 1)
Quarter: 2020Q4

REPORT INFORMATION
  Report Type: Spontaneous
  Country: BE (occurrence: BE)
  Receive Date: 20201106
  Receipt Date: 20201106
  Transmission Date: 20210114
  Serious: Yes (Other)
  Sender: FDA-Public Use
  Company Number: BE-009507513-2011BEL001087

PATIENT
  Sex: Female

DRUGS (5)
  1. ELOCOM [Suspect]
     Active Substance: MOMETASONE FUROATE
     Indication: CUTANEOUS T-CELL LYMPHOMA
     Route: 061
  2. ROFERON-A [Suspect]
     Active Substance: INTERFERON ALFA-2A
     Indication: CUTANEOUS T-CELL LYMPHOMA
     Dosage: 3 MU 3 X /WEEK,
     Route: 065
  3. BETAMETHASONE DIPROPIONATE. [Suspect]
     Active Substance: BETAMETHASONE DIPROPIONATE
     Indication: CUTANEOUS T-CELL LYMPHOMA
     Route: 061
  4. XERIAL P SHAMPOO [Suspect]
     Active Substance: SALICYLIC ACID\UREA
     Indication: CUTANEOUS T-CELL LYMPHOMA
     Route: 061
  5. ROFERON-A [Suspect]
     Active Substance: INTERFERON ALFA-2A
     Dosage: 6 U 3 X /WEEK
     Route: 065

REACTIONS (8)
  - Staphylococcal infection [Unknown]
  - Skin exfoliation [Unknown]
  - Palmoplantar keratoderma [Unknown]
  - Folliculitis [Unknown]
  - Hyperkeratosis [Unknown]
  - Skin discolouration [Unknown]
  - Papule [Unknown]
  - Erythema [Unknown]
